FAERS Safety Report 6150895-9 (Version None)
Quarter: 2009Q2

REPORT INFORMATION
  Report Type: 
  Country: None (occurrence: None)
  Receive Date: 20090408
  Receipt Date: 20090327
  Transmission Date: 20091009
  Serious: Yes (Hospitalization)
  Sender: FDA-Public Use
  Company Number: FABR-1000620

PATIENT
  Age: 57 Year
  Sex: Male

DRUGS (4)
  1. FABRAZYME [Suspect]
     Indication: FABRY'S DISEASE
     Dosage: 1 MG/KG, Q2W, INTRAVENOUS, 1 MG/KG, Q2W, INTRAVENOUS
     Route: 042
     Dates: start: 20080221, end: 20080401
  2. FABRAZYME [Suspect]
     Indication: FABRY'S DISEASE
     Dosage: 1 MG/KG, Q2W, INTRAVENOUS, 1 MG/KG, Q2W, INTRAVENOUS
     Route: 042
     Dates: start: 20081201
  3. FABRAZYME [Suspect]
  4. UNSPECIFIED IMMUNOSUPRESSION [Concomitant]

REACTIONS (2)
  - PNEUMONIA [None]
  - WHITE BLOOD CELL COUNT DECREASED [None]
